FAERS Safety Report 8573378-5 (Version None)
Quarter: 2012Q3

REPORT INFORMATION
  Report Type: 
  Country: None (occurrence: None)
  Receive Date: 20120806
  Receipt Date: 20120730
  Transmission Date: 20120928
  Serious: Yes (Death, Hospitalization)
  Sender: FDA-Public Use
  Company Number: JP-PFIZER INC-2012163409

PATIENT
  Age: 64 Year
  Sex: Male

DRUGS (1)
  1. TORISEL [Suspect]
     Indication: RENAL CELL CARCINOMA
     Dosage: 25 MG, UNK
     Route: 041
     Dates: start: 20120607, end: 20120101

REACTIONS (1)
  - PNEUMOCYSTIS JIROVECI PNEUMONIA [None]
